FAERS Safety Report 8525976-2 (Version None)
Quarter: 2012Q3

REPORT INFORMATION
  Report Type: 
  Country: None (occurrence: None)
  Receive Date: 20120720
  Receipt Date: 20120716
  Transmission Date: 20120928
  Serious: Yes (Hospitalization, Other)
  Sender: FDA-Public Use
  Company Number: AR-ABBOTT-12P-007-0957368-00

PATIENT
  Sex: Female

DRUGS (6)
  1. FOLIC ACID [Concomitant]
     Indication: PRODUCT USED FOR UNKNOWN INDICATION
     Dosage: ONE PILL PER DAY
  2. HUMIRA [Suspect]
     Indication: RHEUMATOID ARTHRITIS
     Dosage: EVERY ONE MONTH
     Route: 058
     Dates: start: 20120330, end: 20120530
  3. DICLOFENAC [Concomitant]
     Indication: PAIN
  4. CALCIUM [Concomitant]
     Indication: PRODUCT USED FOR UNKNOWN INDICATION
     Dosage: ONE PILL PER DAY
  5. LEFLUNOMIDE [Concomitant]
     Indication: PRODUCT USED FOR UNKNOWN INDICATION
     Dosage: 20 MG DAILY, 1 PILL PER DAY
  6. PRIDINOL [Concomitant]
     Indication: PAIN

REACTIONS (4)
  - ESCHERICHIA INFECTION [None]
  - BACK PAIN [None]
  - HYPERTENSION [None]
  - PYREXIA [None]
